FAERS Safety Report 13848878 (Version 1)
Quarter: 2017Q3

REPORT INFORMATION
  Report Type: Spontaneous
  Country: US (occurrence: US)
  Receive Date: 20170809
  Receipt Date: 20170809
  Transmission Date: 20171127
  Serious: Yes (Other)
  Sender: FDA-Public Use
  Company Number: None

PATIENT
  Age: 54 Year
  Sex: Female
  Weight: 74.91 kg

DRUGS (1)
  1. SPIRONOLACTONE 50MG AMNEAL PHARMACY [Suspect]
     Active Substance: SPIRONOLACTONE
     Indication: ACNE
     Route: 048
     Dates: start: 20170512, end: 20170714

REACTIONS (4)
  - Dyspnoea [None]
  - Hot flush [None]
  - Nausea [None]
  - Chills [None]

NARRATIVE: CASE EVENT DATE: 20170507
